FAERS Safety Report 10227282 (Version 1)
Quarter: 2014Q2

REPORT INFORMATION
  Report Type: Spontaneous
  Country: NL (occurrence: NL)
  Receive Date: 20140610
  Receipt Date: 20140610
  Transmission Date: 20141212
  Serious: Yes (Other)
  Sender: FDA-Public Use
  Company Number: NL-JNJFOC-20140517886

PATIENT
  Sex: 0

DRUGS (1)
  1. METHYLPHENIDATE HYDROCHLORIDE [Suspect]
     Indication: ATTENTION DEFICIT/HYPERACTIVITY DISORDER
     Route: 048

REACTIONS (14)
  - Suicide attempt [Unknown]
  - Intentional product misuse [Unknown]
  - Intentional product misuse [Unknown]
  - Drug abuse [Unknown]
  - Psychotic disorder [Unknown]
  - Hallucination [Unknown]
  - Accidental exposure to product [Unknown]
  - Accidental exposure to product by child [Unknown]
  - Agitation [Unknown]
  - Mucosal dryness [Unknown]
  - Incorrect route of drug administration [Unknown]
  - Somnolence [Unknown]
  - Tachycardia [Unknown]
  - Headache [Unknown]
